FAERS Safety Report 4899108-6 (Version None)
Quarter: 2006Q1

REPORT INFORMATION
  Report Type: 
  Country: None (occurrence: None)
  Receive Date: 20060202
  Receipt Date: 20050404
  Transmission Date: 20060701
  Serious: Yes (Other)
  Sender: FDA-Public Use
  Company Number: PHNU2005DE01513

PATIENT
  Age: 15 Year
  Sex: Female
  Weight: 82 kg

DRUGS (2)
  1. LIORESAL [Suspect]
     Indication: PARESIS
     Dosage: UNKNOWN
     Route: 048
  2. LIORESAL [Suspect]
     Dosage: 100 MG/DAY
     Route: 048

REACTIONS (7)
  - BLOOD THYROID STIMULATING HORMONE DECREASED [None]
  - BLOOD THYROID STIMULATING HORMONE INCREASED [None]
  - HYPERTHYROIDISM [None]
  - HYPOTHYROIDISM [None]
  - THYROXINE DECREASED [None]
  - THYROXINE INCREASED [None]
  - TRI-IODOTHYRONINE INCREASED [None]
